FAERS Safety Report 18826698 (Version 1)
Quarter: 2021Q1

REPORT INFORMATION
  Report Type: Spontaneous
  Country: US (occurrence: US)
  Receive Date: 20210201
  Receipt Date: 20210201
  Transmission Date: 20210419
  Serious: No
  Sender: FDA-Public Use
  Company Number: US-ABBVIE-20K-163-3415474-00

PATIENT
  Age: 6 Year
  Sex: Female
  Weight: 28.15 kg

DRUGS (4)
  1. MELATONIN [Concomitant]
     Active Substance: MELATONIN
     Indication: SLEEP DISORDER
  2. HUMIRA [Suspect]
     Active Substance: ADALIMUMAB
     Indication: JUVENILE IDIOPATHIC ARTHRITIS
     Route: 058
     Dates: start: 20170711, end: 201909
  3. FLINTSTONES COMPLETE [Concomitant]
     Active Substance: VITAMINS
     Indication: SUPPLEMENTATION THERAPY
  4. HUMIRA [Suspect]
     Active Substance: ADALIMUMAB
     Route: 058
     Dates: start: 20200405

REACTIONS (4)
  - Arthritis [Unknown]
  - Incorrect dose administered [Unknown]
  - Juvenile idiopathic arthritis [Unknown]
  - Needle issue [Unknown]

NARRATIVE: CASE EVENT DATE: 20200326
